FAERS Safety Report 10052271 (Version 3)
Quarter: 2014Q2

REPORT INFORMATION
  Report Type: Report from Study
  Country: JP (occurrence: JP)
  Receive Date: 20140402
  Receipt Date: 20140411
  Transmission Date: 20141212
  Serious: Yes (Death, Other)
  Sender: FDA-Public Use
  Company Number: JP-TAKEDA-TCI2012A06392

PATIENT
  Age: 82 Year
  Sex: Female
  Weight: 45 kg

DRUGS (7)
  1. ALOGLIPTIN [Suspect]
     Indication: TYPE 2 DIABETES MELLITUS
     Dosage: 25 MG, QD
     Route: 048
     Dates: start: 20101117, end: 20121024
  2. BASEN [Concomitant]
     Indication: TYPE 2 DIABETES MELLITUS
     Dosage: 0.3 MG, TID
     Route: 048
     Dates: end: 20121024
  3. REPTOR [Concomitant]
     Dosage: 300 MG, 1 DAYS
     Route: 048
  4. MECOBALAMIN [Concomitant]
     Dosage: 1500 ?G, 1 DAYS
     Route: 048
  5. LIPITOR [Concomitant]
     Dosage: 5 MG, 1 DAYS
     Route: 048
  6. AMLODIPINE                         /00972402/ [Concomitant]
     Dosage: 5 MG, 1 DAYS
     Route: 048
  7. AMARYL [Concomitant]
     Indication: TYPE 2 DIABETES MELLITUS
     Dosage: 1 MG, BID
     Route: 048
     Dates: end: 20121024

REACTIONS (1)
  - Myocardial infarction [Fatal]
